FAERS Safety Report 8934132 (Version 1)
Quarter: 2012Q4

REPORT INFORMATION
  Report Type: 
  Country: US (occurrence: US)
  Receive Date: 20121129
  Receipt Date: 20121129
  Transmission Date: 20130627
  Serious: No
  Sender: FDA-Public Use
  Company Number: US-BAYER-2012-124244

PATIENT
  Age: 82 Year
  Sex: Female
  Weight: 124.72 kg

DRUGS (5)
  1. ALEVE GELCAP [Suspect]
     Indication: ARTHRITIS
     Dosage: 2 DF, BID
     Route: 048
     Dates: start: 201207
  2. ALEVE CAPLET/TABLET,MIDOL EXTENDED RELIEF CAPLET [Suspect]
     Indication: ARTHRITIS
     Dosage: UNK
     Route: 048
  3. METFORMIN [Concomitant]
  4. METOPROLOL [Concomitant]
  5. SULFASALAZINE [Concomitant]

REACTIONS (4)
  - Overdose [Not Recovered/Not Resolved]
  - Incorrect drug administration duration [Not Recovered/Not Resolved]
  - Blood pressure increased [None]
  - Drug ineffective [None]
